FAERS Safety Report 25049763 (Version 2)
Quarter: 2025Q1

REPORT INFORMATION
  Report Type: Spontaneous
  Country: JP (occurrence: JP)
  Receive Date: 20250307
  Receipt Date: 20250327
  Transmission Date: 20250408
  Serious: Yes (Hospitalization)
  Sender: MERCK SHARP & DOHME LLC
  Company Number: JP-009507513-2261233

PATIENT
  Age: 8 Decade

DRUGS (4)
  1. KEYTRUDA [Suspect]
     Active Substance: PEMBROLIZUMAB
     Indication: Bladder cancer stage IV
     Dosage: 200MG, EVERY 3 WEEKS
     Route: 041
  2. KEYTRUDA [Suspect]
     Active Substance: PEMBROLIZUMAB
     Indication: Bladder cancer stage IV
     Dosage: 200MG, EVERY 3 WEEKS
     Route: 041
  3. PADCEV [Suspect]
     Active Substance: ENFORTUMAB VEDOTIN-EJFV
     Indication: Bladder cancer stage IV
  4. PADCEV [Suspect]
     Active Substance: ENFORTUMAB VEDOTIN-EJFV
     Indication: Bladder cancer stage IV

REACTIONS (3)
  - Skin disorder [Recovered/Resolved]
  - Therapy partial responder [Unknown]
  - Skin disorder [Unknown]
